FAERS Safety Report 5235311-3 (Version None)
Quarter: 2007Q1

REPORT INFORMATION
  Report Type: 
  Country: None (occurrence: None)
  Receive Date: 20070207
  Receipt Date: 20070207
  Transmission Date: 20070707
  Serious: No
  Sender: FDA-Public Use
  Company Number: None

PATIENT
  Age: 85 Year
  Sex: Female
  Weight: 71.2 kg

DRUGS (4)
  1. ALEVE [Suspect]
  2. RABEPRAZOLE NA [Concomitant]
  3. SYNTHROID [Concomitant]
  4. ESTROGENS CONJUGATED [Concomitant]

REACTIONS (1)
  - RASH [None]
